FAERS Safety Report 20850511 (Version 1)
Quarter: 2022Q2

REPORT INFORMATION
  Report Type: Spontaneous
  Country: US (occurrence: US)
  Receive Date: 20220519
  Receipt Date: 20220519
  Transmission Date: 20220720
  Serious: Yes (Hospitalization, Other)
  Sender: FDA-Public Use
  Company Number: US-APTALIS PHARMA CANADA INC.-AXC-2013-000296

PATIENT
  Sex: Male

DRUGS (1)
  1. MESALAMINE [Suspect]
     Active Substance: MESALAMINE
     Indication: Colitis ulcerative
     Dosage: 1.5 G, QD
     Route: 065

REACTIONS (7)
  - Acute kidney injury [Recovering/Resolving]
  - Fatigue [Recovering/Resolving]
  - Urine abnormality [Recovering/Resolving]
  - Oedema peripheral [Recovering/Resolving]
  - Abdominal pain [Recovering/Resolving]
  - Tubulointerstitial nephritis [Recovering/Resolving]
  - Nausea [Recovering/Resolving]
